FAERS Safety Report 5916667-2 (Version None)
Quarter: 2008Q4

REPORT INFORMATION
  Report Type: 
  Country: None (occurrence: None)
  Receive Date: 20081013
  Receipt Date: 20081006
  Transmission Date: 20090506
  Serious: Yes (Hospitalization)
  Sender: FDA-Public Use
  Company Number: FR-ABBOTT-08P-056-0439875-00

PATIENT
  Sex: Male

DRUGS (1)
  1. MICROPAKINE GRANULE - 33 PERCENT [Suspect]
     Indication: PETIT MAL EPILEPSY
     Route: 048
     Dates: start: 20071226, end: 20080208

REACTIONS (7)
  - ABDOMINAL PAIN [None]
  - CONFUSIONAL STATE [None]
  - DIARRHOEA [None]
  - DRUG TOXICITY [None]
  - ENCEPHALITIS [None]
  - SOMNOLENCE [None]
  - VOMITING [None]
